FAERS Safety Report 8561558 (Version 4)
Quarter: 2013Q4

REPORT INFORMATION
  Report Type: Spontaneous
  Country: US (occurrence: US)
  Receive Date: 20120515
  Receipt Date: 20131126
  Transmission Date: 20140711
  Serious: Yes (Hospitalization)
  Sender: FDA-Public Use
  Company Number: US-BIOGENIDEC-2012BI016209

PATIENT
  Age: 54 Year
  Sex: Female

DRUGS (1)
  1. TYSABRI [Suspect]
     Indication: MULTIPLE SCLEROSIS
     Route: 042
     Dates: start: 20080204, end: 20130816

REACTIONS (7)
  - Bronchial disorder [Not Recovered/Not Resolved]
  - Pulmonary oedema [Not Recovered/Not Resolved]
  - Respiratory arrest [Unknown]
  - Skin discolouration [Unknown]
  - Pneumonia aspiration [Recovered/Resolved]
  - Cardiac failure congestive [Recovered/Resolved]
  - Fatigue [Unknown]
